FAERS Safety Report 5150876-8 (Version None)
Quarter: 2006Q4

REPORT INFORMATION
  Report Type: 
  Country: None (occurrence: None)
  Receive Date: 20061108
  Receipt Date: 20061030
  Transmission Date: 20070319
  Serious: Yes (Hospitalization)
  Sender: FDA-Public Use
  Company Number: GXKR2006GB06899

PATIENT
  Age: 75 Year
  Sex: Male

DRUGS (2)
  1. WARFARIN SODIUM [Suspect]
     Indication: THROMBOSIS PROPHYLAXIS
  2. NSAID'S (NO INGREDIENTS/SUBSTANCES) [Concomitant]

REACTIONS (14)
  - ARTHRALGIA [None]
  - BLOOD CREATININE INCREASED [None]
  - CONTUSION [None]
  - FATIGUE [None]
  - HAEMOGLOBIN DECREASED [None]
  - INTERNATIONAL NORMALISED RATIO INCREASED [None]
  - MOVEMENT DISORDER [None]
  - MUSCULAR WEAKNESS [None]
  - NAUSEA [None]
  - OLIGURIA [None]
  - PARAESTHESIA [None]
  - PROCEDURAL PAIN [None]
  - RETROPERITONEAL HAEMATOMA [None]
  - VOMITING [None]
